FAERS Safety Report 4939120-1 (Version None)
Quarter: 2006Q1

REPORT INFORMATION
  Report Type: 
  Country: None (occurrence: None)
  Receive Date: 20060306
  Receipt Date: 20060223
  Transmission Date: 20060701
  Serious: Yes (Disabling, Other)
  Sender: FDA-Public Use
  Company Number: 2005161498

PATIENT
  Age: 52 Year
  Sex: Female
  Weight: 59 kg

DRUGS (7)
  1. NEURONTIN [Suspect]
     Indication: PAIN
     Dosage: UP TO TWO GRAMS (DAILY)
     Dates: start: 20040401, end: 20040801
  2. LYRICA [Suspect]
     Indication: NEURALGIA
     Dosage: 75 MG (75 MG, 1 IN 1 D)
     Dates: end: 20051126
  3. KETAMINE (KETAMINE) [Suspect]
     Indication: PAIN
  4. LEXOMIL (BROMAZEPAM) [Suspect]
     Indication: PAIN
  5. ACETAMINOPHEN AND TRAMADOL HCL [Suspect]
     Indication: PAIN
  6. EFFEXOR [Suspect]
     Indication: PAIN
  7. CLONAZEPAM [Concomitant]

REACTIONS (16)
  - BURNING SENSATION [None]
  - DIZZINESS [None]
  - DRUG INEFFECTIVE [None]
  - FATIGUE [None]
  - GENERAL PHYSICAL HEALTH DETERIORATION [None]
  - IMPAIRED WORK ABILITY [None]
  - MEMORY IMPAIRMENT [None]
  - MUSCLE SPASMS [None]
  - MYALGIA [None]
  - NEURALGIA [None]
  - PAIN [None]
  - PALLOR [None]
  - SOMNOLENCE [None]
  - SUICIDAL IDEATION [None]
  - VERTIGO [None]
  - VISUAL ACUITY REDUCED [None]
